FAERS Safety Report 22602292 (Version 1)
Quarter: 2023Q2

REPORT INFORMATION
  Report Type: Spontaneous
  Country: RS (occurrence: RS)
  Receive Date: 20230614
  Receipt Date: 20230614
  Transmission Date: 20230722
  Serious: Yes (Other)
  Sender: FDA-Public Use
  Company Number: RS-PFIZER INC-PV202300102192

PATIENT
  Age: 57 Year
  Sex: Female

DRUGS (9)
  1. XELJANZ [Suspect]
     Active Substance: TOFACITINIB CITRATE
     Indication: Rheumatoid arthritis
     Dosage: UNK
     Dates: start: 202108
  2. BROMAZEPAM [Concomitant]
     Active Substance: BROMAZEPAM
     Dosage: 3 MG 1X1 AS REQUIRED
  3. ASPIRIN [Concomitant]
     Active Substance: ASPIRIN
     Dosage: 100 MG, 1X/DAY
  4. CO AMLESSA [Concomitant]
     Dosage: 8+10+2.5 MG 1X1
  5. CO AMLESSA [Concomitant]
     Dosage: 8 MG/10 MG/2.5 MG 1+0+0
  6. LASIX [Concomitant]
     Active Substance: FUROSEMIDE
     Dosage: 40 MG 1X1 ON ALTERNATE DAYS
  7. PANTOPRAZOLE SODIUM [Concomitant]
     Active Substance: PANTOPRAZOLE SODIUM
     Dosage: 40 MG 1+0+0 HALF AN HOUR BEFORE BREAKFAST
  8. SPIRONOLACTONE [Concomitant]
     Active Substance: SPIRONOLACTONE
     Dosage: 25 MG, 1X/DAY
  9. CHOLECALCIFEROL [Concomitant]
     Active Substance: CHOLECALCIFEROL
     Dosage: 5 DROP, 1X/DAY

REACTIONS (5)
  - Renal cyst [Not Recovered/Not Resolved]
  - Renal cyst infection [Unknown]
  - Back pain [Unknown]
  - Tinea pedis [Unknown]
  - Hyperkeratosis [Unknown]

NARRATIVE: CASE EVENT DATE: 20220822
